FAERS Safety Report 18915507 (Version 1)
Quarter: 2021Q1

REPORT INFORMATION
  Report Type: Spontaneous
  Country: US (occurrence: US)
  Receive Date: 20210218
  Receipt Date: 20210218
  Transmission Date: 20210420
  Serious: No
  Sender: FDA-Public Use
  Company Number: None

PATIENT
  Age: 33 Year
  Sex: Male
  Weight: 117.93 kg

DRUGS (1)
  1. CABOMETYX [Suspect]
     Active Substance: CABOZANTINIB S-MALATE
     Indication: SARCOMA
     Route: 048
     Dates: start: 20210122

REACTIONS (6)
  - Paraesthesia oral [None]
  - Dry skin [None]
  - Taste disorder [None]
  - Stomatitis [None]
  - Dry throat [None]
  - Pain in extremity [None]
